FAERS Safety Report 10561919 (Version 3)
Quarter: 2014Q4

REPORT INFORMATION
  Report Type: Spontaneous
  Country: DE (occurrence: DE)
  Receive Date: 20141104
  Receipt Date: 20141118
  Transmission Date: 20150529
  Serious: Yes (Other)
  Sender: FDA-Public Use
  Company Number: DE-ROCHE-1482197

PATIENT
  Sex: Female

DRUGS (6)
  1. PANTOPRAZOLE [Concomitant]
     Active Substance: PANTOPRAZOLE SODIUM
     Indication: CARDIAC DISORDER
  2. KEPPRA [Concomitant]
     Active Substance: LEVETIRACETAM
     Indication: CARDIAC DISORDER
  3. LYRICA [Concomitant]
     Active Substance: PREGABALIN
     Indication: CARDIAC DISORDER
  4. BISOPROLOL [Concomitant]
     Active Substance: BISOPROLOL
     Indication: CARDIAC DISORDER
  5. RIVOTRIL [Suspect]
     Active Substance: CLONAZEPAM
     Indication: PANIC ATTACK
     Route: 065
  6. RIVOTRIL [Suspect]
     Active Substance: CLONAZEPAM
     Indication: EPILEPSY

REACTIONS (6)
  - Drug dependence [Unknown]
  - Syncope [Recovered/Resolved]
  - Rash erythematous [Unknown]
  - Joint swelling [Unknown]
  - Pain in extremity [Unknown]
  - Joint dislocation [Unknown]
